FAERS Safety Report 6549031-6 (Version None)
Quarter: 2010Q1

REPORT INFORMATION
  Report Type: 
  Country: None (occurrence: None)
  Receive Date: 20100125
  Receipt Date: 20100119
  Transmission Date: 20100710
  Serious: Yes (Death)
  Sender: FDA-Public Use
  Company Number: US-JNJFOC-20080705018

PATIENT
  Sex: Female

DRUGS (12)
  1. SANDOZ FENTANYL TRANSDERMAL SYSTEM [Suspect]
     Indication: PAIN
     Dosage: TWO 100 UG/HR PATCHES
     Route: 062
  2. ACETAMINOPHEN [Suspect]
     Route: 065
  3. ACETAMINOPHEN [Suspect]
     Indication: DRUG USE FOR UNKNOWN INDICATION
     Route: 065
  4. ALPRAZOLAM [Concomitant]
  5. DEXTROMETHORPHAN [Concomitant]
  6. DIAZEPAM [Concomitant]
  7. DIPHENHYDRAMINE [Concomitant]
  8. DOXYLAMINE [Concomitant]
  9. MIRTAZAPINE [Concomitant]
  10. TRAZODONE [Concomitant]
  11. ZOLPIDEM [Concomitant]
  12. SYNTHROID [Concomitant]
     Route: 065

REACTIONS (3)
  - DRUG TOXICITY [None]
  - ERYTHEMA [None]
  - INADEQUATE ANALGESIA [None]
